FAERS Safety Report 7794817-3 (Version None)
Quarter: 2011Q4

REPORT INFORMATION
  Report Type: 
  Country: None (occurrence: None)
  Receive Date: 20111004
  Receipt Date: 20111003
  Transmission Date: 20120403
  Serious: No
  Sender: FDA-Public Use
  Company Number: US-PFIZER INC-2011235526

PATIENT
  Sex: Male
  Weight: 86.168 kg

DRUGS (1)
  1. PROCARDIA XL [Suspect]
     Indication: BLOOD PRESSURE MANAGEMENT
     Dosage: 60 MG,DAILY
     Route: 048
     Dates: start: 19950101, end: 20110901

REACTIONS (1)
  - JOINT SWELLING [None]
